FAERS Safety Report 7167685-0 (Version None)
Quarter: 2010Q4

REPORT INFORMATION
  Report Type: 
  Country: None (occurrence: None)
  Receive Date: 20101216
  Receipt Date: 20100727
  Transmission Date: 20110411
  Serious: No
  Sender: FDA-Public Use
  Company Number: A0872503A

PATIENT
  Age: 54 Year
  Sex: Female

DRUGS (1)
  1. NICOTINE POLACRILEX [Suspect]
     Dates: start: 20100716, end: 20100725

REACTIONS (3)
  - DYSPEPSIA [None]
  - FEELING ABNORMAL [None]
  - MALAISE [None]
